FAERS Safety Report 5021390-5 (Version None)
Quarter: 2006Q2

REPORT INFORMATION
  Report Type: 
  Country: None (occurrence: None)
  Receive Date: 20060605
  Receipt Date: 20060522
  Transmission Date: 20061013
  Serious: Yes (Hospitalization, Other)
  Sender: FDA-Public Use
  Company Number: 2005151767

PATIENT
  Age: 72 Year
  Sex: Male
  Weight: 63.5036 kg

DRUGS (7)
  1. CELEBREX [Suspect]
     Indication: ARTHRITIS
     Dosage: 200 MG (200 MG, 1 IN 1 D)
     Dates: start: 20010720
  2. BEXTRA [Suspect]
     Indication: ILL-DEFINED DISORDER
     Dates: start: 20020712
  3. VIOXX [Suspect]
     Indication: ILL-DEFINED DISORDER
  4. ASPIRIN [Concomitant]
  5. DILTIAZEM XT (DILTIAZEM HYDROCHLORIDE) [Concomitant]
  6. PROPOXYPHENE NAPSYLATE W/ACETAMINOPHEN (DEXTROPROPOXYPHENE NAPSILATE, [Concomitant]
  7. PLAQUENIL [Concomitant]

REACTIONS (6)
  - CAROTID ARTERY STENOSIS [None]
  - CEREBRAL ATROPHY [None]
  - CEREBRAL INFARCTION [None]
  - CEREBRAL ISCHAEMIA [None]
  - CEREBROVASCULAR ACCIDENT [None]
  - TRANSIENT ISCHAEMIC ATTACK [None]
